FAERS Safety Report 23357029 (Version 1)
Quarter: 2023Q4

REPORT INFORMATION
  Report Type: Spontaneous
  Country: US (occurrence: None)
  Receive Date: 20231229
  Receipt Date: 20231229
  Transmission Date: 20240110
  Serious: Yes (Death)
  Sender: FDA-Public Use
  Company Number: None

PATIENT
  Sex: Male

DRUGS (11)
  1. GAVRETO [Suspect]
     Active Substance: PRALSETINIB
     Indication: Lung neoplasm malignant
     Route: 048
     Dates: start: 20230706
  2. GAVRETO [Suspect]
     Active Substance: PRALSETINIB
     Indication: Bronchial carcinoma
  3. CARBOPLATIN [Concomitant]
     Active Substance: CARBOPLATIN
  4. DEXAMETH PHO [Concomitant]
  5. FOSAPREPITAN [Concomitant]
  6. KEYTRUDA [Concomitant]
     Active Substance: PEMBROLIZUMAB
  7. ONDANSETRON [Concomitant]
     Active Substance: ONDANSETRON
  8. PALONOSETRON [Concomitant]
     Active Substance: PALONOSETRON
  9. PEMETREXED [Concomitant]
  10. RETEVMO [Concomitant]
  11. XGEVA [Concomitant]
     Active Substance: DENOSUMAB

REACTIONS (1)
  - Death [None]
